FAERS Safety Report 14554521 (Version 1)
Quarter: 2018Q1

REPORT INFORMATION
  Report Type: Spontaneous
  Country: FR (occurrence: FR)
  Receive Date: 20180220
  Receipt Date: 20180220
  Transmission Date: 20180509
  Serious: Yes (Hospitalization)
  Sender: FDA-Public Use
  Company Number: FR-TEVA-2018-FR-856965

PATIENT
  Age: 59 Year
  Sex: Male
  Weight: 88 kg

DRUGS (3)
  1. TRAMADOL. [Suspect]
     Active Substance: TRAMADOL
     Indication: SCIATICA
     Dosage: 300 MILLIGRAM DAILY;
     Route: 048
     Dates: start: 20170729, end: 20170804
  2. DOLIPRANE [Concomitant]
     Active Substance: ACETAMINOPHEN
     Indication: SCIATICA
     Dosage: 4000 GRAM DAILY;
     Route: 048
     Dates: start: 20170729
  3. CELECOXIB. [Concomitant]
     Active Substance: CELECOXIB
     Indication: SCIATICA
     Dosage: 100 MICROGRAM DAILY;
     Route: 048
     Dates: start: 20170729, end: 20170804

REACTIONS (3)
  - Confusional state [Recovered/Resolved]
  - Fall [Recovered/Resolved]
  - Disorientation [Recovered/Resolved]

NARRATIVE: CASE EVENT DATE: 20170803
